FAERS Safety Report 23113625 (Version 1)
Quarter: 2023Q4

REPORT INFORMATION
  Report Type: Report from Study
  Country: US (occurrence: US)
  Receive Date: 20231027
  Receipt Date: 20231027
  Transmission Date: 20240109
  Serious: Yes (Hospitalization, Other)
  Sender: FDA-Public Use
  Company Number: US-002147023-NVSC2022US200249

PATIENT
  Sex: Female
  Weight: 133.79 kg

DRUGS (4)
  1. TREPROSTINIL [Suspect]
     Active Substance: TREPROSTINIL
     Indication: Pulmonary arterial hypertension
     Dosage: 30 NG/KG/MIN, CONT (STRENGTH: 2.5 MG/ML)
     Route: 042
     Dates: start: 20220822
  2. TREPROSTINIL [Suspect]
     Active Substance: TREPROSTINIL
     Dosage: 75 NG/KG/MIN, CONT (STRENGTH: 5 MG/ML)
     Route: 042
  3. TREPROSTINIL [Suspect]
     Active Substance: TREPROSTINIL
     Dosage: 86 NG/KG/MIN, CONT (STRENGTH: 1 MG/ML)
     Route: 042
  4. TADALAFIL [Concomitant]
     Active Substance: TADALAFIL
     Indication: Product used for unknown indication
     Dosage: UNK
     Route: 065

REACTIONS (12)
  - Right ventricular failure [Unknown]
  - Hypervolaemia [Unknown]
  - Venous haemorrhage [Unknown]
  - Paraesthesia oral [Unknown]
  - Oral pain [Unknown]
  - Taste disorder [Unknown]
  - Dyspnoea exertional [Unknown]
  - Catheter site haemorrhage [Unknown]
  - Drug ineffective [Unknown]
  - Rehabilitation therapy [Unknown]
  - Pain [Recovered/Resolved]
  - Device dislocation [Unknown]
